FAERS Safety Report 15302207 (Version 4)
Quarter: 2018Q4

REPORT INFORMATION
  Report Type: Report from Study
  Country: US (occurrence: US)
  Receive Date: 20180821
  Receipt Date: 20181001
  Transmission Date: 20190204
  Serious: Yes (Death, Hospitalization, Other)
  Sender: FDA-Public Use
  Company Number: US-EXELIXIS-CABO-18015465

PATIENT
  Age: 71 Year
  Sex: Male

DRUGS (22)
  1. COLACE [Concomitant]
     Active Substance: DOCUSATE SODIUM
  2. KLOR-CON [Concomitant]
     Active Substance: POTASSIUM CHLORIDE
  3. COMETRIQ [Suspect]
     Active Substance: CABOZANTINIB S-MALATE
     Indication: RENAL CANCER
     Dosage: 80 MG, UNK
  4. CALCITRIOL. [Concomitant]
     Active Substance: CALCITRIOL
  5. ENSURE [Concomitant]
     Active Substance: AMINO ACIDS\DEXTROSE\ELECTROLYTES NOS\SOYBEAN OIL\VITAMINS
  6. COUMADIN [Suspect]
     Active Substance: WARFARIN SODIUM
     Indication: THROMBOSIS PROPHYLAXIS
     Dosage: UNK
  7. LOVENOX [Suspect]
     Active Substance: ENOXAPARIN SODIUM
     Indication: THROMBOSIS PROPHYLAXIS
     Dosage: UNK
  8. NORCO [Concomitant]
     Active Substance: ACETAMINOPHEN\HYDROCODONE BITARTRATE
  9. DIFLUCAN [Concomitant]
     Active Substance: FLUCONAZOLE
  10. COMETRIQ [Suspect]
     Active Substance: CABOZANTINIB S-MALATE
     Dosage: 60 MG, QD
     Route: 048
     Dates: start: 20180122
  11. LASIX [Concomitant]
     Active Substance: FUROSEMIDE
  12. ZOFRAN [Concomitant]
     Active Substance: ONDANSETRON HYDROCHLORIDE
  13. PREDNISONE. [Concomitant]
     Active Substance: PREDNISONE
  14. LEVOTHYROXINE. [Concomitant]
     Active Substance: LEVOTHYROXINE
  15. IMODIUM A-D [Concomitant]
     Active Substance: LOPERAMIDE HYDROCHLORIDE
  16. COMETRIQ [Suspect]
     Active Substance: CABOZANTINIB S-MALATE
     Dosage: 40 MG, QD
     Route: 048
     Dates: start: 20180326
  17. COMPAZINE [Concomitant]
     Active Substance: PROCHLORPERAZINE MALEATE
  18. COZAAR [Concomitant]
     Active Substance: LOSARTAN POTASSIUM
  19. AMLODIPINE [Concomitant]
     Active Substance: AMLODIPINE BESYLATE
  20. HYDRALAZINE [Concomitant]
     Active Substance: HYDRALAZINE HYDROCHLORIDE
  21. NORVASC [Concomitant]
     Active Substance: AMLODIPINE BESYLATE
  22. MIRALAX [Concomitant]
     Active Substance: POLYETHYLENE GLYCOL 3350

REACTIONS (7)
  - Acute kidney injury [Fatal]
  - Off label use [Unknown]
  - Anaemia [Unknown]
  - Aortic aneurysm [Not Recovered/Not Resolved]
  - Deep vein thrombosis [Recovered/Resolved]
  - Abdominal wall haematoma [Unknown]
  - Atrial fibrillation [Recovering/Resolving]

NARRATIVE: CASE EVENT DATE: 20150720
